FAERS Safety Report 6694429-9 (Version None)
Quarter: 2010Q2

REPORT INFORMATION
  Report Type: 
  Country: None (occurrence: None)
  Receive Date: 20100423
  Receipt Date: 20100414
  Transmission Date: 20101027
  Serious: Yes (Hospitalization)
  Sender: FDA-Public Use
  Company Number: AT-ABBOTT-09P-009-0611715-01

PATIENT
  Sex: Female
  Weight: 75 kg

DRUGS (6)
  1. HUMIRA [Suspect]
     Indication: COLITIS ULCERATIVE
     Route: 058
     Dates: start: 20090904, end: 20091113
  2. THYREX [Concomitant]
     Indication: HYPOTHYROIDISM
     Dates: start: 20090904
  3. GLUCOPHAGE [Concomitant]
     Indication: TYPE 2 DIABETES MELLITUS
     Dates: start: 20090904
  4. HALCION [Concomitant]
     Indication: INSOMNIA
     Dates: start: 20090904
  5. PANTOPRAZOLE [Concomitant]
     Indication: DYSPEPSIA
     Dates: start: 20090904
  6. MESAGRAN [Concomitant]
     Indication: COLITIS ULCERATIVE
     Dates: start: 20090904

REACTIONS (1)
  - UPPER RESPIRATORY TRACT INFECTION [None]
